FAERS Safety Report 20648954 (Version 1)
Quarter: 2022Q1

REPORT INFORMATION
  Report Type: Spontaneous
  Country: CN (occurrence: CN)
  Receive Date: 20220329
  Receipt Date: 20220329
  Transmission Date: 20220423
  Serious: Yes (Hospitalization)
  Sender: FDA-Public Use
  Company Number: CN-ORGANON-O2203CHN002051

PATIENT
  Age: 57 Year
  Sex: Female
  Weight: 55 kg

DRUGS (3)
  1. DIPROSPAN [Suspect]
     Active Substance: BETAMETHASONE DIPROPIONATE\BETAMETHASONE SODIUM PHOSPHATE
     Indication: Spinal osteoarthritis
     Dosage: 1 VIAL, Q2W
     Dates: start: 20220311, end: 20220311
  2. SODIUM CHLORIDE [Concomitant]
     Active Substance: SODIUM CHLORIDE
     Indication: Spinal osteoarthritis
     Dosage: 10ML (ALSO REPORTED AS 10MG), QOW (REPORTED AS Q2W)
     Route: 061
     Dates: start: 20220311, end: 20220311
  3. LIDOCAINE [Concomitant]
     Active Substance: LIDOCAINE
     Indication: Spinal osteoarthritis
     Dosage: 1 DOSAGE FORM, QOW (REPORTED AS 1 VIAL, Q2W)
     Route: 061
     Dates: start: 20220311, end: 20220311

REACTIONS (3)
  - Headache [Recovered/Resolved]
  - Vertigo [Recovered/Resolved]
  - Nausea [Recovering/Resolving]

NARRATIVE: CASE EVENT DATE: 20220311
